FAERS Safety Report 8338408-4 (Version None)
Quarter: 2012Q2

REPORT INFORMATION
  Report Type: 
  Country: None (occurrence: None)
  Receive Date: 20120504
  Receipt Date: 20120502
  Transmission Date: 20120825
  Serious: Yes (Hospitalization, Other)
  Sender: FDA-Public Use
  Company Number: DE-ROCHE-1060243

PATIENT
  Sex: Female
  Weight: 72 kg

DRUGS (17)
  1. AVASTIN [Suspect]
     Indication: BREAST CANCER METASTATIC
     Dosage: DATE OF LAST DOSE PRIOR TO SAE:16/02/2012
     Route: 042
     Dates: start: 20110909, end: 20120216
  2. SIMVASTATIN [Concomitant]
     Dosage: 1 IN EVENING,SIMVASTATIN 20
  3. XELODA [Suspect]
     Indication: BREAST CANCER METASTATIC
     Dosage: DATE OF LAST DOSE PRIOR TO SAE:29/02/2012
     Route: 048
     Dates: start: 20110909, end: 20120308
  4. BISOPROLOL FUMARATE [Concomitant]
     Dosage: BISOPROLOL10/25,1 IN MORNING.
  5. PENTAERYTHRITOL TETRANITRATE [Concomitant]
     Dosage: PENTALONG 80: 1 MORNING, 1 NIGHT
  6. LEVEMIR [Concomitant]
     Dosage: 8 IE AT NIGHT
  7. AVASTIN [Suspect]
     Dosage: DATE OF LAST DOSE PRIOR TO SAE:22/03/2012
     Route: 042
     Dates: start: 20120322, end: 20120410
  8. ASPIRIN [Concomitant]
     Dosage: 1 IN THE MORNING
  9. XELODA [Suspect]
     Dosage: DATE OF LAST DOSE PRIOR TO SAE:04/04/2012
     Route: 048
     Dates: start: 20120322, end: 20120404
  10. MICARDIS [Concomitant]
     Dosage: NICARDIA 80,1 IN MORNING
  11. PANTOPRAZOLE [Concomitant]
     Dosage: 1 IN MORNING
  12. AMLODIPINE [Concomitant]
     Dosage: AMLODEPINE 5 MG,1 IN AFTERNOON
  13. METFORMIN HCL [Concomitant]
     Dosage: METFORMIN 1000,0.5 IN MORNING
  14. CYNT [Concomitant]
     Dosage: 1 IN EVENING
  15. NOVALGIN [Concomitant]
     Dosage: 30 DROPS IN MORNING,AFTERNOON, EVENING AND NIGHT
  16. LIPROLOG [Concomitant]
     Dosage: 8 IN MORNING,4IN AFTERNOON AND EVENING
  17. PACLITAXEL [Suspect]
     Indication: BREAST CANCER METASTATIC
     Dosage: DATE OF LAST DOSE PRIOR TO SAE:03/02/2012
     Route: 042
     Dates: start: 20110909, end: 20120203

REACTIONS (2)
  - VESICAL FISTULA [None]
  - PROTEINURIA [None]
